FAERS Safety Report 6502004-1 (Version None)
Quarter: 2009Q4

REPORT INFORMATION
  Report Type: 
  Country: None (occurrence: None)
  Receive Date: 20091209
  Receipt Date: 20091201
  Transmission Date: 20100525
  Serious: Yes (Life-Threatening, Other)
  Sender: FDA-Public Use
  Company Number: THYM-1001303

PATIENT
  Age: 15 Year
  Sex: Male
  Weight: 60 kg

DRUGS (10)
  1. THYMOGLOBULINE         (ANTI-THYMOCYTE GLOBULIN (RABBIT)) POWDER FOR S [Suspect]
     Indication: TRANSPLANT
     Dosage: 2.5 MG/KG
     Dates: start: 20091115, end: 20091119
  2. POLARAMINE [Concomitant]
  3. SOLU-MEDROL [Concomitant]
  4. PERFALGAN (PARACETAMOL) [Concomitant]
  5. CYCLOPHOSPHAMIDE [Concomitant]
  6. MESNA [Concomitant]
  7. RANITIDINE HYDROCHLORIDE [Concomitant]
  8. VANCOMYCIN [Concomitant]
  9. AMIKIN [Concomitant]
  10. PIPERACILLIN (PIPERACILLIN SODIUM) [Concomitant]

REACTIONS (3)
  - CAPILLARY LEAK SYNDROME [None]
  - PYREXIA [None]
  - RENAL FAILURE [None]
